FAERS Safety Report 6028134-9 (Version None)
Quarter: 2009Q1

REPORT INFORMATION
  Report Type: 
  Country: None (occurrence: None)
  Receive Date: 20090105
  Receipt Date: 20090105
  Transmission Date: 20090719
  Serious: Yes (Life-Threatening, Hospitalization)
  Sender: FDA-Public Use
  Company Number: None

PATIENT
  Age: 57 Year
  Sex: Female
  Weight: 55.3388 kg

DRUGS (2)
  1. ADVAIR DISKUS 500/50 [Suspect]
     Indication: ASTHMA
     Dosage: 1 PUFF 2 X DAILY 054
     Dates: start: 20050601, end: 20060501
  2. ADVAIR DISKUS 500/50 [Suspect]
     Indication: EMPHYSEMA
     Dosage: 1 PUFF 2 X DAILY 054
     Dates: start: 20050601, end: 20060501

REACTIONS (7)
  - ARRHYTHMIA [None]
  - DEHYDRATION [None]
  - HEPATITIS [None]
  - KIDNEY INFECTION [None]
  - PNEUMONIA [None]
  - SEPSIS [None]
  - SINUS HEADACHE [None]
